FAERS Safety Report 19726270 (Version 1)
Quarter: 2021Q3

REPORT INFORMATION
  Report Type: Spontaneous
  Country: US (occurrence: US)
  Receive Date: 20210819
  Receipt Date: 20210819
  Transmission Date: 20211014
  Serious: No
  Sender: FDA-Public Use
  Company Number: None

PATIENT
  Age: 30 Year
  Sex: Male

DRUGS (1)
  1. MYCOPHENOLATE 500MG ACCORD HEALTHCARE [Suspect]
     Active Substance: MYCOPHENOLATE MOFETIL
     Indication: MALIGNANT MELANOMA
     Route: 048
     Dates: start: 20210316, end: 20210604

REACTIONS (2)
  - Middle insomnia [None]
  - Abdominal pain [None]

NARRATIVE: CASE EVENT DATE: 20210316
